FAERS Safety Report 6215992-8 (Version None)
Quarter: 2009Q2

REPORT INFORMATION
  Report Type: 
  Country: None (occurrence: None)
  Receive Date: 20090603
  Receipt Date: 20090603
  Transmission Date: 20091009
  Serious: Yes (Death)
  Sender: FDA-Public Use
  Company Number: None

PATIENT
  Age: 75 Year
  Sex: Male

DRUGS (1)
  1. HEPARIN [Suspect]
     Dates: start: 20090401

REACTIONS (8)
  - ANGINA PECTORIS [None]
  - CARDIAC DISORDER [None]
  - DIALYSIS [None]
  - HEPARIN-INDUCED THROMBOCYTOPENIA [None]
  - LIVER DISORDER [None]
  - LUNG DISORDER [None]
  - RENAL FAILURE [None]
  - THROMBOSIS IN DEVICE [None]
